FAERS Safety Report 8131691-X (Version None)
Quarter: 2012Q1

REPORT INFORMATION
  Report Type: 
  Country: None (occurrence: None)
  Receive Date: 20120213
  Receipt Date: 20120206
  Transmission Date: 20120608
  Serious: Yes (Death)
  Sender: FDA-Public Use
  Company Number: JP-SANOFI-AVENTIS-2012SA008370

PATIENT
  Age: 60 Year
  Sex: Female
  Weight: 83 kg

DRUGS (9)
  1. PREDNISOLONE [Concomitant]
     Route: 042
     Dates: start: 20110922, end: 20110925
  2. SOLU-MEDROL [Concomitant]
     Route: 042
     Dates: start: 20110924, end: 20110924
  3. LASIX [Concomitant]
     Route: 042
  4. MAXIPIME [Concomitant]
     Route: 042
  5. CATABON [Concomitant]
  6. HANP [Concomitant]
  7. FAMOTIDINE [Concomitant]
  8. RASBURICASE [Suspect]
     Route: 042
     Dates: start: 20110923, end: 20110924
  9. ALBUMIN (HUMAN) [Concomitant]
     Route: 042

REACTIONS (1)
  - DEATH [None]
